FAERS Safety Report 5877095-1 (Version None)
Quarter: 2008Q3

REPORT INFORMATION
  Report Type: 
  Country: None (occurrence: None)
  Receive Date: 20080910
  Receipt Date: 20080904
  Transmission Date: 20090109
  Serious: Yes (Death)
  Sender: FDA-Public Use
  Company Number: PHBS2008ES05629

PATIENT
  Age: 48 Year
  Sex: Female

DRUGS (7)
  1. CYCLOSPORINE [Suspect]
     Indication: CHOROIDITIS
     Dosage: 5 MG/KG/DAY
  2. PREDNISONE TAB [Suspect]
     Indication: CHOROIDITIS
     Dosage: 1 MG/KG/DAY
  3. PREDNISONE TAB [Suspect]
     Dosage: 27.5 MG/DAY
  4. AZATHIOPRINE [Suspect]
     Indication: CHOROIDITIS
     Dosage: 150 MG/DAY
  5. MYCOPHENOLATE MOFETIL [Suspect]
     Indication: CHOROIDITIS
  6. METHOTREXATE [Suspect]
     Indication: CHOROIDITIS
  7. INFLIXIMAB [Suspect]
     Indication: CHOROIDITIS
     Dosage: 5 MG/KG

REACTIONS (11)
  - BACTERIAL CULTURE POSITIVE [None]
  - DISEASE PROGRESSION [None]
  - DISSEMINATED TUBERCULOSIS [None]
  - EYE DISORDER [None]
  - EYE INFLAMMATION [None]
  - GASTRIC DISORDER [None]
  - INTESTINAL PERFORATION [None]
  - PYREXIA [None]
  - SCOTOMA [None]
  - SURGERY [None]
  - WEIGHT DECREASED [None]
